FAERS Safety Report 6311265-3 (Version None)
Quarter: 2009Q3

REPORT INFORMATION
  Report Type: 
  Country: None (occurrence: None)
  Receive Date: 20090817
  Receipt Date: 20090521
  Transmission Date: 20100115
  Serious: No
  Sender: FDA-Public Use
  Company Number: US-BAYER-200921689NA

PATIENT
  Age: 26 Year
  Sex: Female
  Weight: 61 kg

DRUGS (3)
  1. MIRENA [Suspect]
     Indication: CONTRACEPTION
     Dosage: 20 UG/DAY CONTINUOUS
     Route: 015
     Dates: start: 20090520
  2. CIPRO [Concomitant]
     Indication: TOOTH EXTRACTION
  3. ADVIL [Concomitant]
     Indication: PAIN

REACTIONS (2)
  - ABDOMINAL PAIN LOWER [None]
  - CHILLS [None]
